FAERS Safety Report 17923915 (Version 1)
Quarter: 2020Q2

REPORT INFORMATION
  Report Type: Spontaneous
  Country: US (occurrence: US)
  Receive Date: 20200622
  Receipt Date: 20200622
  Transmission Date: 20200714
  Serious: Yes (Hospitalization)
  Sender: FDA-Public Use
  Company Number: None

PATIENT
  Sex: Female

DRUGS (14)
  1. ATORVASTATIN [Concomitant]
     Active Substance: ATORVASTATIN
  2. POT CHLORIDE [Concomitant]
     Active Substance: POTASSIUM CHLORIDE
  3. TIMOLOL. [Concomitant]
     Active Substance: TIMOLOL
  4. TRESIBA [Concomitant]
     Active Substance: INSULIN DEGLUDEC
  5. TERAZOSINE [Concomitant]
     Active Substance: TERAZOSIN HYDROCHLORIDE
  6. ALPRAZOLAM. [Concomitant]
     Active Substance: ALPRAZOLAM
  7. RISPERIDONE. [Concomitant]
     Active Substance: RISPERIDONE
  8. ESCITALOPRAM [Concomitant]
     Active Substance: ESCITALOPRAM OXALATE
  9. PREDNISOLONE. [Concomitant]
     Active Substance: PREDNISOLONE
  10. DULOXETINE. [Concomitant]
     Active Substance: DULOXETINE
  11. OXCARBAZEPIN [Concomitant]
     Active Substance: OXCARBAZEPINE
  12. NOVOLOG [Concomitant]
     Active Substance: INSULIN ASPART
  13. AUSTEDO [Suspect]
     Active Substance: DEUTETRABENAZINE
     Indication: DYSKINESIA
     Route: 048
     Dates: start: 20190702
  14. FUROSEMIDE. [Concomitant]
     Active Substance: FUROSEMIDE

REACTIONS (2)
  - Urinary tract infection [None]
  - Renal transplant [None]
